FAERS Safety Report 14993692 (Version 6)
Quarter: 2018Q3

REPORT INFORMATION
  Report Type: Spontaneous
  Country: US (occurrence: US)
  Receive Date: 20180611
  Receipt Date: 20180917
  Transmission Date: 20181010
  Serious: Yes (Life-Threatening, Disabling, Other)
  Sender: FDA-Public Use
  Company Number: US-BRISTOL-MYERS SQUIBB COMPANY-BMS-2018-053144

PATIENT
  Sex: Male
  Weight: 58.96 kg

DRUGS (1)
  1. ELIQUIS [Suspect]
     Active Substance: APIXABAN
     Indication: PULMONARY EMBOLISM
     Dosage: 5 MG, BID
     Route: 048
     Dates: start: 201602

REACTIONS (5)
  - Limb injury [Unknown]
  - Cough [Unknown]
  - Memory impairment [Unknown]
  - Peripheral venous disease [Unknown]
  - Peripheral swelling [Not Recovered/Not Resolved]
